FAERS Safety Report 17053267 (Version 5)
Quarter: 2021Q4

REPORT INFORMATION
  Report Type: Spontaneous
  Country: US (occurrence: US)
  Receive Date: 20191120
  Receipt Date: 20211215
  Transmission Date: 20220303
  Serious: No
  Sender: FDA-Public Use
  Company Number: US-PFIZER INC-2019497830

PATIENT
  Age: 71 Year
  Sex: Female

DRUGS (25)
  1. ANSAID [Suspect]
     Active Substance: FLURBIPROFEN
     Dosage: UNK
  2. METOCLOPRAMIDE HYDROCHLORIDE [Suspect]
     Active Substance: METOCLOPRAMIDE HYDROCHLORIDE
     Dosage: UNK
  3. NAPROXEN SODIUM [Suspect]
     Active Substance: NAPROXEN SODIUM
     Dosage: UNK
  4. PIROXICAM [Suspect]
     Active Substance: PIROXICAM
     Dosage: UNK
  5. FLAGYL [Suspect]
     Active Substance: METRONIDAZOLE\METRONIDAZOLE HYDROCHLORIDE
     Dosage: UNK
  6. LYRICA [Suspect]
     Active Substance: PREGABALIN
     Dosage: UNK
  7. ASPARAGUS [Suspect]
     Active Substance: ASPARAGUS
  8. ASPARTAME [Suspect]
     Active Substance: ASPARTAME
     Dosage: UNK
  9. BACTRIM [Suspect]
     Active Substance: SULFAMETHOXAZOLE\TRIMETHOPRIM
     Dosage: UNK
  10. CECLOR [Suspect]
     Active Substance: CEFACLOR
     Dosage: UNK
  11. CEFTRIAXONE [Suspect]
     Active Substance: CEFTRIAXONE
     Dosage: UNK
  12. CEFUROXIME [Suspect]
     Active Substance: CEFUROXIME
     Dosage: UNK
  13. DOXYCYCLINE [Suspect]
     Active Substance: DOXYCYCLINE
     Dosage: UNK
  14. FLEXERIL [Suspect]
     Active Substance: CYCLOBENZAPRINE HYDROCHLORIDE
     Dosage: UNK
  15. KEFLEX [Suspect]
     Active Substance: CEPHALEXIN
     Dosage: UNK
  16. KETOPROFEN [Suspect]
     Active Substance: KETOPROFEN
     Dosage: UNK
  17. LAMISIL [Suspect]
     Active Substance: TERBINAFINE HYDROCHLORIDE
     Dosage: UNK
  18. LODINE [Suspect]
     Active Substance: ETODOLAC
     Dosage: UNK
  19. MONOSODIUM GLUTAMATE [Suspect]
     Active Substance: MONOSODIUM GLUTAMATE
     Dosage: UNK
  20. MOTRIN [Suspect]
     Active Substance: IBUPROFEN
     Dosage: UNK
  21. REMICADE [Suspect]
     Active Substance: INFLIXIMAB
     Dosage: UNK
  22. RIFAXIMIN [Suspect]
     Active Substance: RIFAXIMIN
     Dosage: UNK
  23. SULINDAC [Suspect]
     Active Substance: SULINDAC
     Dosage: UNK
  24. TIZANIDINE [Suspect]
     Active Substance: TIZANIDINE
     Dosage: UNK
  25. TOLMETIN [Suspect]
     Active Substance: TOLMETIN
     Dosage: UNK

REACTIONS (5)
  - Drug hypersensitivity [Unknown]
  - Urticaria [Unknown]
  - Rash [Unknown]
  - Diarrhoea [Unknown]
  - Pruritus [Unknown]
